FAERS Safety Report 21634521 (Version 2)
Quarter: 2023Q1

REPORT INFORMATION
  Report Type: Spontaneous
  Country: US (occurrence: US)
  Receive Date: 20221123
  Receipt Date: 20230124
  Transmission Date: 20230417
  Serious: Yes (Other)
  Sender: FDA-Public Use
  Company Number: US-BRISTOL-MYERS SQUIBB COMPANY-2022-142339

PATIENT
  Age: 77 Year
  Sex: Female
  Weight: 53.98 kg

DRUGS (2)
  1. POMALYST [Suspect]
     Active Substance: POMALIDOMIDE
     Indication: Plasma cell myeloma
  2. POMALYST [Suspect]
     Active Substance: POMALIDOMIDE
     Dosage: DAILY
     Route: 048
     Dates: start: 20221001

REACTIONS (2)
  - Cytopenia [Unknown]
  - Constipation [Unknown]
